FAERS Safety Report 14699106 (Version 1)
Quarter: 2018Q1

REPORT INFORMATION
  Report Type: Report from Study
  Country: JP (occurrence: JP)
  Receive Date: 20180330
  Receipt Date: 20180330
  Transmission Date: 20180509
  Serious: Yes (Hospitalization)
  Sender: FDA-Public Use
  Company Number: JP-TEVA-2018-JP-853635

PATIENT
  Age: 61 Year
  Sex: Female
  Weight: 50.5 kg

DRUGS (9)
  1. TRIAZOLAM. [Concomitant]
     Active Substance: TRIAZOLAM
  2. PRAVASTATIN SODIUM. [Concomitant]
     Active Substance: PRAVASTATIN SODIUM
  3. LOXOPROFEN SODIUM [Concomitant]
     Active Substance: LOXOPROFEN SODIUM
  4. METHYCOBAL [Concomitant]
     Active Substance: METHYLCOBALAMIN
  5. TIZANIDINE. [Concomitant]
     Active Substance: TIZANIDINE
  6. GLATIRAMER ACETATE INJECTION [Suspect]
     Active Substance: GLATIRAMER ACETATE
     Indication: RELAPSING-REMITTING MULTIPLE SCLEROSIS
     Dosage: 20 MILLIGRAM DAILY;
     Route: 058
     Dates: start: 20170424
  7. JZOLOFT [Concomitant]
     Active Substance: SERTRALINE HYDROCHLORIDE
  8. ETIZOLAM [Concomitant]
     Active Substance: ETIZOLAM
  9. MOHRUS [Concomitant]
     Active Substance: KETOPROFEN
     Dates: start: 20170517

REACTIONS (3)
  - Fibula fracture [Recovering/Resolving]
  - Injection site pruritus [Recovering/Resolving]
  - Fall [Recovering/Resolving]

NARRATIVE: CASE EVENT DATE: 201705
